FAERS Safety Report 16591935 (Version 3)
Quarter: 2019Q3

REPORT INFORMATION
  Report Type: Report from Study
  Country: US (occurrence: US)
  Receive Date: 20190718
  Receipt Date: 20190923
  Transmission Date: 20191004
  Serious: Yes (Other)
  Sender: FDA-Public Use
  Company Number: US-MALLINCKRODT-T201904313

PATIENT
  Sex: Female

DRUGS (4)
  1. REPOSITORY CORTICOTROPIN INJECTION [Suspect]
     Active Substance: CORTICOTROPIN
     Indication: SARCOIDOSIS
     Dosage: 80 UNITS/1ML, TWO TIMES PER WEEK (MONDAY AND FRIDAY)
     Route: 058
     Dates: start: 20161210
  2. REPOSITORY CORTICOTROPIN INJECTION [Suspect]
     Active Substance: CORTICOTROPIN
     Dosage: 80 UNITS/1ML, TWO TIMES PER WEEK (MONDAY AND FRIDAY)
     Route: 058
  3. PREDNISONE. [Concomitant]
     Active Substance: PREDNISONE
     Indication: SARCOIDOSIS
     Dosage: UNK
     Route: 065
  4. PREDNISONE. [Concomitant]
     Active Substance: PREDNISONE
     Dosage: 60 MILLIGRAM
     Route: 065

REACTIONS (19)
  - Hyperhidrosis [Not Recovered/Not Resolved]
  - Sarcoidosis [Unknown]
  - Condition aggravated [Unknown]
  - Dehydration [Unknown]
  - Diabetes mellitus [Unknown]
  - Cardiac sarcoidosis [Unknown]
  - Feeling jittery [Unknown]
  - Insomnia [Unknown]
  - Ocular sarcoidosis [Unknown]
  - Fatigue [Unknown]
  - Dyspepsia [Unknown]
  - Underdose [Unknown]
  - Product dose omission [Unknown]
  - Facial paralysis [Unknown]
  - Rotator cuff syndrome [Unknown]
  - Thirst [Not Recovered/Not Resolved]
  - Vision blurred [Unknown]
  - Headache [Unknown]
  - Carpal tunnel syndrome [Unknown]
